FAERS Safety Report 23968616 (Version 1)
Quarter: 2024Q2

REPORT INFORMATION
  Report Type: Spontaneous
  Country: DE (occurrence: DE)
  Receive Date: 20240612
  Receipt Date: 20240612
  Transmission Date: 20240716
  Serious: Yes (Death)
  Sender: FDA-Public Use
  Company Number: DE-DCGMA-24203437

PATIENT
  Sex: Male

DRUGS (2)
  1. SERTRALINE [Suspect]
     Active Substance: SERTRALINE HYDROCHLORIDE
     Indication: Product used for unknown indication
     Dosage: DOSE INCREASE
     Route: 065
     Dates: start: 20231030
  2. OLANZAPINE [Concomitant]
     Active Substance: OLANZAPINE
     Dosage: DOSE INCREASE TO 20 MG
     Route: 065

REACTIONS (7)
  - Personality change [Fatal]
  - Sleep disorder [Fatal]
  - Hypophagia [Fatal]
  - Disturbance in attention [Fatal]
  - Completed suicide [Fatal]
  - Nervousness [Fatal]
  - Restlessness [Fatal]

NARRATIVE: CASE EVENT DATE: 20231109
